FAERS Safety Report 8299267-1 (Version None)
Quarter: 2012Q2

REPORT INFORMATION
  Report Type: 
  Country: None (occurrence: None)
  Receive Date: 20120419
  Receipt Date: 20120412
  Transmission Date: 20120825
  Serious: Yes (Hospitalization)
  Sender: FDA-Public Use
  Company Number: US-US-EMD SERONO, INC.-7124198

PATIENT
  Sex: Male
  Weight: 82 kg

DRUGS (3)
  1. REBIF [Suspect]
     Indication: MULTIPLE SCLEROSIS
     Route: 058
     Dates: start: 20051021, end: 20090109
  2. KEPPRA [Concomitant]
     Indication: CONVULSION
     Dates: start: 20050101
  3. REBIF [Suspect]
     Route: 058
     Dates: start: 20101209

REACTIONS (3)
  - DYSSTASIA [None]
  - PNEUMONIA ASPIRATION [None]
  - GAIT DISTURBANCE [None]
